FAERS Safety Report 4678092-4 (Version None)
Quarter: 2005Q2

REPORT INFORMATION
  Report Type: 
  Country: None (occurrence: None)
  Receive Date: 20050531
  Receipt Date: 20050531
  Transmission Date: 20051028
  Serious: Yes (Life-Threatening, Disabling)
  Sender: FDA-Public Use
  Company Number: None

PATIENT
  Age: 46 Year
  Sex: Female
  Weight: 81.6475 kg

DRUGS (1)
  1. RELION R NSULIN     100 UNITS/ML    10 ML   NOVO NORDISK [Suspect]
     Indication: BLOOD GLUCOSE ABNORMAL
     Dosage: 32 UNITS  ONE PER DAY  SUBCUTANEOUS;  20 UNITS  ONE PER DAY  SUBCUTANEOUS
     Route: 058
     Dates: start: 20050519, end: 20050530

REACTIONS (5)
  - BLOOD GLUCOSE INCREASED [None]
  - DRUG DOSE OMISSION [None]
  - PHARMACEUTICAL PRODUCT COMPLAINT [None]
  - STRESS [None]
  - TREATMENT NONCOMPLIANCE [None]
